FAERS Safety Report 25835720 (Version 2)
Quarter: 2025Q4

REPORT INFORMATION
  Report Type: Spontaneous
  Country: EU (occurrence: EU)
  Receive Date: 20250923
  Receipt Date: 20251013
  Transmission Date: 20260118
  Serious: Yes (Other)
  Sender: TEVA
  Company Number: EU-TEVA-VS-3373810

PATIENT
  Age: 75 Year
  Sex: Female

DRUGS (3)
  1. LETROZOLE [Suspect]
     Active Substance: LETROZOLE
     Indication: Hidradenocarcinoma
     Dosage: 1-0-0
     Route: 065
  2. ABEMACICLIB [Suspect]
     Active Substance: ABEMACICLIB
     Indication: Hidradenocarcinoma
     Dosage: 1-0-1
     Route: 065
  3. LOPERAMIDE [Concomitant]
     Active Substance: LOPERAMIDE
     Indication: Diarrhoea
     Route: 065

REACTIONS (4)
  - Myocarditis [Unknown]
  - Ejection fraction decreased [Unknown]
  - Troponin increased [Unknown]
  - Off label use [Unknown]
